FAERS Safety Report 20032213 (Version 1)
Quarter: 2021Q4

REPORT INFORMATION
  Report Type: Spontaneous
  Country: CN (occurrence: None)
  Receive Date: 20211103
  Receipt Date: 20211103
  Transmission Date: 20220303
  Serious: Yes (Hospitalization)
  Sender: FDA-Public Use
  Company Number: 2021A787413

PATIENT
  Age: 16137 Day
  Sex: Female
  Weight: 52 kg

DRUGS (3)
  1. TAGRISSO [Suspect]
     Active Substance: OSIMERTINIB
     Indication: Tumour treating fields therapy
     Route: 048
     Dates: start: 20210916, end: 20211020
  2. BEVACIZUMAB [Concomitant]
     Active Substance: BEVACIZUMAB
     Indication: Tumour treating fields therapy
     Route: 041
     Dates: start: 20210916, end: 20210916
  3. OPRELVEKIN [Concomitant]
     Active Substance: OPRELVEKIN
     Indication: Platelet disorder
     Dates: start: 20211008, end: 20211013

REACTIONS (2)
  - Platelet count decreased [Recovering/Resolving]
  - Oral pain [Recovering/Resolving]

NARRATIVE: CASE EVENT DATE: 20211009
